FAERS Safety Report 12676940 (Version 1)
Quarter: 2016Q3

REPORT INFORMATION
  Report Type: Spontaneous
  Country: US (occurrence: US)
  Receive Date: 20160823
  Receipt Date: 20160823
  Transmission Date: 20161109
  Serious: No
  Sender: FDA-Public Use
  Company Number: US-TEVA-593337USA

PATIENT
  Sex: Male
  Weight: 23.61 kg

DRUGS (1)
  1. CLONIDINE. [Suspect]
     Active Substance: CLONIDINE
     Indication: ATTENTION DEFICIT/HYPERACTIVITY DISORDER
     Route: 061
     Dates: start: 20150710, end: 20150810

REACTIONS (5)
  - Hypersensitivity [Unknown]
  - Application site vesicles [Unknown]
  - Product use issue [Unknown]
  - Application site burn [Unknown]
  - Application site rash [Unknown]
